FAERS Safety Report 6745428-X (Version None)
Quarter: 2010Q2

REPORT INFORMATION
  Report Type: 
  Country: None (occurrence: None)
  Receive Date: 20100528
  Receipt Date: 20100428
  Transmission Date: 20101027
  Serious: No
  Sender: FDA-Public Use
  Company Number: US-BAYER-201020865NA

PATIENT
  Age: 45 Year
  Sex: Female

DRUGS (1)
  1. MIRENA [Suspect]
     Indication: MIGRAINE
     Dosage: FREQUENCY CONTINUOUS
     Route: 015

REACTIONS (2)
  - DEVICE DISLOCATION [None]
  - DEVICE EXPULSION [None]
